FAERS Safety Report 4400934-8 (Version None)
Quarter: 2004Q3

REPORT INFORMATION
  Report Type: 
  Country: None (occurrence: None)
  Receive Date: 20040907
  Receipt Date: 20030818
  Transmission Date: 20050211
  Serious: No
  Sender: FDA-Public Use
  Company Number: US-BRISTOL-MYERS SQUIBB COMPANY-12357760

PATIENT
  Age: 49 Year
  Sex: Female

DRUGS (8)
  1. COUMADIN [Suspect]
     Indication: CEREBROVASCULAR ACCIDENT
     Route: 048
     Dates: start: 20030725
  2. CETIRIZINE HCL [Concomitant]
  3. HYDROXYZINE [Concomitant]
  4. POTASSIUM CHLORIDE [Concomitant]
  5. PRAVASTATIN SODIUM [Concomitant]
  6. TRIAMTERENE AND HYDROCHLOROTHIAZIDE [Concomitant]
  7. VENLAFAXINE HCL [Concomitant]
  8. VERAPAMIL [Concomitant]

REACTIONS (2)
  - PRURITUS [None]
  - RASH ERYTHEMATOUS [None]
